FAERS Safety Report 9832792 (Version 1)
Quarter: 2014Q1

REPORT INFORMATION
  Report Type: Spontaneous
  Country: ES (occurrence: GB)
  Receive Date: 20140121
  Receipt Date: 20140121
  Transmission Date: 20141002
  Serious: Yes (Other)
  Sender: FDA-Public Use
  Company Number: GB-FRI-1000052952

PATIENT
  Sex: Male

DRUGS (1)
  1. ACLIDINIUM [Suspect]
     Dates: end: 20140106

REACTIONS (2)
  - Urinary retention [Unknown]
  - Dry mouth [Unknown]
